FAERS Safety Report 5914197-5 (Version None)
Quarter: 2008Q4

REPORT INFORMATION
  Report Type: 
  Country: None (occurrence: None)
  Receive Date: 20081009
  Receipt Date: 20080929
  Transmission Date: 20090506
  Serious: Yes (Hospitalization)
  Sender: FDA-Public Use
  Company Number: FR-PFIZER INC-2008082692

PATIENT
  Sex: Male

DRUGS (2)
  1. LYRICA [Suspect]
  2. TAHOR [Suspect]

REACTIONS (2)
  - ERYTHEMA [None]
  - PYREXIA [None]
